FAERS Safety Report 10251834 (Version 1)
Quarter: 2014Q2

REPORT INFORMATION
  Report Type: Spontaneous
  Country: CA (occurrence: CA)
  Receive Date: 20140623
  Receipt Date: 20140623
  Transmission Date: 20141212
  Serious: Yes (Other)
  Sender: FDA-Public Use
  Company Number: CA-ROCHE-1419465

PATIENT
  Age: 61 Year
  Sex: Male
  Weight: 103 kg

DRUGS (11)
  1. AVASTIN [Suspect]
     Indication: PRODUCT USED FOR UNKNOWN INDICATION
     Route: 042
  2. AVASTIN [Suspect]
     Indication: PRODUCT USED FOR UNKNOWN INDICATION
     Route: 042
  3. CLONAZEPAM [Concomitant]
     Route: 065
  4. ATROPINE [Concomitant]
  5. DEXAMETHASONE [Concomitant]
  6. FLUOROURACIL [Concomitant]
  7. IRINOTECAN HYDROCHLORIDE [Concomitant]
  8. LEUCOVORIN [Concomitant]
  9. ONDANSETRON [Concomitant]
  10. PROCHLORPERAZINE [Concomitant]
  11. VITAMIN B12 [Concomitant]

REACTIONS (3)
  - Dyspnoea [Not Recovered/Not Resolved]
  - Ejection fraction decreased [Not Recovered/Not Resolved]
  - Oedema peripheral [Not Recovered/Not Resolved]
